FAERS Safety Report 5714322-5 (Version None)
Quarter: 2008Q2

REPORT INFORMATION
  Report Type: 
  Country: None (occurrence: None)
  Receive Date: 20080421
  Receipt Date: 20080411
  Transmission Date: 20081010
  Serious: Yes (Other)
  Sender: FDA-Public Use
  Company Number: 2008SP006992

PATIENT
  Age: 60 Year
  Sex: Male
  Weight: 105 kg

DRUGS (7)
  1. TEMODAL (TEMOZOLOMIDE) (TEMOZOLOMIDE) [Suspect]
     Indication: DRUG USE FOR UNKNOWN INDICATION
     Dosage: 150 MG;QD;PO
     Route: 048
     Dates: start: 20080213, end: 20080326
  2. ECHINACIN CAPSETTEN [Concomitant]
  3. ECHINACIN LIQUIDUM [Concomitant]
  4. PARACETAMOL [Concomitant]
  5. PANTHENOL [Concomitant]
  6. DYNEXAN [Concomitant]
  7. FORTECORTIN [Concomitant]

REACTIONS (1)
  - JAUNDICE [None]
